FAERS Safety Report 11349505 (Version 1)
Quarter: 2015Q3

REPORT INFORMATION
  Report Type: Spontaneous
  Country: US (occurrence: None)
  Receive Date: 20150702
  Receipt Date: 20150702
  Transmission Date: 20151125
  Serious: Yes (Other)
  Sender: FDA-Public Use
  Company Number: 2014ILOUS001306

PATIENT
  Age: 22 Year
  Sex: Male

DRUGS (2)
  1. FANAPT [Suspect]
     Active Substance: ILOPERIDONE
     Indication: SCHIZOPHRENIA
     Route: 048
     Dates: start: 20140728, end: 20141027
  2. ZOLOFT [Concomitant]
     Active Substance: SERTRALINE HYDROCHLORIDE

REACTIONS (2)
  - Dysuria [None]
  - Chromaturia [None]

NARRATIVE: CASE EVENT DATE: 20140728
